FAERS Safety Report 18251128 (Version 1)
Quarter: 2020Q3

REPORT INFORMATION
  Report Type: Spontaneous
  Country: IT (occurrence: IT)
  Receive Date: 20200910
  Receipt Date: 20200910
  Transmission Date: 20201103
  Serious: Yes (Hospitalization, Other)
  Sender: FDA-Public Use
  Company Number: IT-ALLERGAN-2034056US

PATIENT
  Sex: Female

DRUGS (3)
  1. DEPAKIN [Suspect]
     Active Substance: VALPROATE SODIUM
     Indication: MENTAL DISORDER
     Dosage: 3 DF
     Route: 048
     Dates: start: 20200805, end: 20200805
  2. EN [Suspect]
     Active Substance: DELORAZEPAM
     Indication: MENTAL DISORDER
     Dosage: 5 DF
     Route: 048
     Dates: start: 20200805, end: 20200805
  3. CARIPRAZINE HCL ? BP [Suspect]
     Active Substance: CARIPRAZINE HYDROCHLORIDE
     Indication: MENTAL DISORDER
     Dosage: 7.5 MG
     Route: 048
     Dates: start: 20200805, end: 20200805

REACTIONS (4)
  - Intentional overdose [Unknown]
  - Depressed level of consciousness [Recovering/Resolving]
  - Nausea [Recovering/Resolving]
  - Suicide attempt [Recovering/Resolving]

NARRATIVE: CASE EVENT DATE: 20200805
